FAERS Safety Report 12809925 (Version 22)
Quarter: 2021Q1

REPORT INFORMATION
  Report Type: Other
  Country: CA (occurrence: CA)
  Receive Date: 20161005
  Receipt Date: 20210208
  Transmission Date: 20210419
  Serious: Yes (Hospitalization, Other)
  Sender: FDA-Public Use
  Company Number: CA-ROCHE-1837563

PATIENT
  Age: 56 Year
  Sex: Female

DRUGS (18)
  1. XOLAIR [Suspect]
     Active Substance: OMALIZUMAB
     Route: 058
     Dates: start: 20191009
  2. XOLAIR [Suspect]
     Active Substance: OMALIZUMAB
     Indication: ASTHMA
     Route: 058
     Dates: start: 20131203
  3. XOLAIR [Suspect]
     Active Substance: OMALIZUMAB
     Route: 058
     Dates: start: 20171024
  4. XOLAIR [Suspect]
     Active Substance: OMALIZUMAB
     Route: 058
     Dates: start: 20180926
  5. XOLAIR [Suspect]
     Active Substance: OMALIZUMAB
     Route: 058
     Dates: start: 20190313
  6. XOLAIR [Suspect]
     Active Substance: OMALIZUMAB
     Route: 058
     Dates: start: 20190508
  7. XOLAIR [Suspect]
     Active Substance: OMALIZUMAB
     Route: 058
     Dates: start: 20150130
  8. XOLAIR [Suspect]
     Active Substance: OMALIZUMAB
     Route: 058
  9. SALBUTAMOL [Concomitant]
     Active Substance: ALBUTEROL
     Indication: PRODUCT USED FOR UNKNOWN INDICATION
     Dosage: Q4H
     Route: 065
  10. XOLAIR [Suspect]
     Active Substance: OMALIZUMAB
     Route: 058
     Dates: start: 2016
  11. PENTASA [Suspect]
     Active Substance: MESALAMINE
     Indication: PRODUCT USED FOR UNKNOWN INDICATION
     Route: 065
  12. XOLAIR [Suspect]
     Active Substance: OMALIZUMAB
     Route: 058
     Dates: start: 20170831
  13. XOLAIR [Suspect]
     Active Substance: OMALIZUMAB
     Route: 058
  14. XOLAIR [Suspect]
     Active Substance: OMALIZUMAB
     Route: 058
     Dates: start: 20190227
  15. ZENHALE [Concomitant]
     Active Substance: FORMOTEROL FUMARATE\MOMETASONE FUROATE
     Dosage: UNK, Q4H
     Route: 065
  16. XOLAIR [Suspect]
     Active Substance: OMALIZUMAB
     Route: 058
     Dates: start: 20190605
  17. XOLAIR [Suspect]
     Active Substance: OMALIZUMAB
     Route: 058
     Dates: start: 20191023
  18. ZENHALE [Concomitant]
     Active Substance: FORMOTEROL FUMARATE\MOMETASONE FUROATE
     Indication: SINUSITIS
     Dosage: TWICE A DAY AND TWICE AT NIGHT
     Route: 065

REACTIONS (44)
  - Syncope [Unknown]
  - Laryngitis [Unknown]
  - Pharyngitis [Unknown]
  - Oral disorder [Unknown]
  - Weight decreased [Unknown]
  - Musculoskeletal chest pain [Unknown]
  - Lower respiratory tract infection [Recovering/Resolving]
  - Hypersensitivity [Recovering/Resolving]
  - Periorbital pain [Unknown]
  - Arthralgia [Unknown]
  - Wheezing [Unknown]
  - Asthma [Recovered/Resolved]
  - Dysphonia [Unknown]
  - Illness [Recovered/Resolved]
  - Cough [Unknown]
  - Dehydration [Recovering/Resolving]
  - Drug intolerance [Unknown]
  - Upper-airway cough syndrome [Unknown]
  - Dyspepsia [Unknown]
  - Nasopharyngitis [Unknown]
  - Obstructive airways disorder [Unknown]
  - Muscle injury [Unknown]
  - Bronchitis [Recovering/Resolving]
  - Paranasal cyst [Unknown]
  - Blood potassium decreased [Recovering/Resolving]
  - Sinus headache [Unknown]
  - Skin wrinkling [Unknown]
  - Sleep disorder [Unknown]
  - Forced expiratory volume decreased [Not Recovered/Not Resolved]
  - Dyspnoea [Recovered/Resolved]
  - Joint dislocation [Recovered/Resolved]
  - Paranasal sinus discomfort [Recovering/Resolving]
  - Haemorrhoids [Unknown]
  - Productive cough [Unknown]
  - Sinus congestion [Recovered/Resolved]
  - Fatigue [Not Recovered/Not Resolved]
  - Lung disorder [Unknown]
  - Allergy to animal [Unknown]
  - Headache [Recovered/Resolved]
  - Nasal cyst [Unknown]
  - Abnormal faeces [Recovering/Resolving]
  - Allergy to plants [Unknown]
  - Sinusitis [Recovering/Resolving]
  - Mobility decreased [Unknown]

NARRATIVE: CASE EVENT DATE: 20140306
